FAERS Safety Report 5720989-8 (Version None)
Quarter: 2008Q2

REPORT INFORMATION
  Report Type: 
  Country: None (occurrence: None)
  Receive Date: 20080429
  Receipt Date: 20080424
  Transmission Date: 20081010
  Serious: Yes (Other)
  Sender: FDA-Public Use
  Company Number: IT-ASTRAZENECA-2008SE01957

PATIENT
  Age: 23555 Day
  Sex: Male

DRUGS (5)
  1. CASODEX [Suspect]
     Indication: PROSTATE CANCER
     Route: 048
     Dates: start: 20061003, end: 20070306
  2. CASODEX [Suspect]
     Route: 048
     Dates: start: 20071003
  3. RADIOTHERAPY [Concomitant]
     Dates: start: 20061205, end: 20070201
  4. LEUPRORELIN [Concomitant]
  5. FLUTAMIDE [Concomitant]

REACTIONS (1)
  - DERMATITIS ATOPIC [None]
